FAERS Safety Report 19892696 (Version 1)
Quarter: 2021Q3

REPORT INFORMATION
  Report Type: Spontaneous
  Country: RU (occurrence: RU)
  Receive Date: 20210928
  Receipt Date: 20210928
  Transmission Date: 20211014
  Serious: Yes (Other)
  Sender: FDA-Public Use
  Company Number: RU-INCYTE CORPORATION-2021IN008578

PATIENT

DRUGS (1)
  1. JAKAVI [Suspect]
     Active Substance: RUXOLITINIB
     Indication: ERYTHROPOIESIS ABNORMAL
     Dosage: 100 MG/M2(40?100 MG/M2)QD,DIVIDED INTO 3 DOSE
     Route: 065

REACTIONS (2)
  - Product use issue [Unknown]
  - Venoocclusive liver disease [Recovered/Resolved]
